FAERS Safety Report 8155125-4 (Version None)
Quarter: 2012Q1

REPORT INFORMATION
  Report Type: 
  Country: None (occurrence: None)
  Receive Date: 20120221
  Receipt Date: 20120208
  Transmission Date: 20120608
  Serious: Yes (Hospitalization, Other)
  Sender: FDA-Public Use
  Company Number: DE-ELI_LILLY_AND_COMPANY-DE201201004652

PATIENT
  Age: 67 Year
  Sex: Female
  Weight: 84 kg

DRUGS (1)
  1. BYDUREON [Suspect]
     Indication: TYPE 2 DIABETES MELLITUS
     Dosage: UNK
     Dates: start: 20111001

REACTIONS (4)
  - GENERAL PHYSICAL HEALTH DETERIORATION [None]
  - ATRIAL FIBRILLATION [None]
  - WEIGHT DECREASED [None]
  - NAUSEA [None]
